FAERS Safety Report 9959511 (Version 1)
Quarter: 2014Q1

REPORT INFORMATION
  Report Type: Report from Study
  Country: US (occurrence: US)
  Receive Date: 20140305
  Receipt Date: 20140305
  Transmission Date: 20141002
  Serious: No
  Sender: FDA-Public Use
  Company Number: US-ABBVIE-13P-163-1100987-00

PATIENT
  Age: 24 Year
  Sex: Male
  Weight: 99.43 kg

DRUGS (4)
  1. HUMIRA [Suspect]
     Indication: CROHN^S DISEASE
     Dates: start: 20130516, end: 20130516
  2. HUMIRA [Suspect]
     Dates: start: 20130530, end: 20130530
  3. ENTOCORT [Concomitant]
     Indication: CROHN^S DISEASE
  4. NASONEX [Concomitant]
     Indication: SEASONAL ALLERGY

REACTIONS (4)
  - Immune system disorder [Recovered/Resolved]
  - Rash papular [Not Recovered/Not Resolved]
  - Rash pruritic [Not Recovered/Not Resolved]
  - Rash [Recovered/Resolved]
